FAERS Safety Report 8538881 (Version 2)
Quarter: 2013Q2

REPORT INFORMATION
  Report Type: Spontaneous
  Country: US (occurrence: US)
  Receive Date: 20120501
  Receipt Date: 20130531
  Transmission Date: 20140414
  Serious: No
  Sender: FDA-Public Use
  Company Number: US-TEVA-335579USA

PATIENT
  Age: 76 Year
  Sex: Female

DRUGS (10)
  1. AZILECT [Suspect]
     Indication: PARKINSON^S DISEASE
     Route: 048
     Dates: start: 2007
  2. SINEMET [Concomitant]
  3. CARBIDOPA W/LEVODOPA [Concomitant]
     Dosage: 25/200
  4. LISINOPRIL [Concomitant]
     Indication: BLOOD PRESSURE ABNORMAL
     Dosage: AM AND PM
  5. DILTIAZEM [Concomitant]
     Dosage: IN PM
  6. LEXAPRO [Concomitant]
     Dosage: EVENING
  7. FAMOTIDINE [Concomitant]
     Dosage: 20 MILLIGRAM DAILY;
  8. FOLIC ACID [Concomitant]
     Dosage: 20 MILLIGRAM DAILY;
  9. VITAMINS [Concomitant]
  10. COQ10 [Concomitant]

REACTIONS (3)
  - Gait disturbance [Recovered/Resolved]
  - Confusional state [Recovered/Resolved]
  - Speech disorder [Recovered/Resolved]
